FAERS Safety Report 9135517 (Version 1)
Quarter: 2013Q1

REPORT INFORMATION
  Report Type: Spontaneous
  Country: QA (occurrence: QA)
  Receive Date: 20130304
  Receipt Date: 20130304
  Transmission Date: 20140127
  Serious: Yes (Other)
  Sender: FDA-Public Use
  Company Number: PHHY2013QA018599

PATIENT
  Age: 51 Year
  Sex: Female
  Weight: 55 kg

DRUGS (14)
  1. FILGRASTIM [Suspect]
     Indication: LEUKOPENIA
     Dosage: 300 UG, QD, FOR 8 DAYS
     Route: 058
  2. FILGRASTIM [Suspect]
     Indication: NEUTROPENIA
  3. SPIRONOLACTONE [Suspect]
     Dosage: 50 MG, QD
  4. FUROSEMIDE [Suspect]
     Dosage: 40 MG, QD
  5. ETOPOSIDE [Suspect]
     Indication: HODGKIN^S DISEASE
     Dosage: 40 MG/M2, DAILY, ON DAYS 1?4
     Route: 042
     Dates: start: 20120423, end: 20120427
  6. METHYLPREDNISOLONE [Suspect]
     Indication: HODGKIN^S DISEASE
     Dosage: 500 MG, DAILY, ON DAYS 1?4
     Route: 042
     Dates: start: 20120423, end: 20120427
  7. CYTARABINE [Suspect]
     Indication: HODGKIN^S DISEASE
     Dosage: 2000 MG/M2, ON DAY 5
     Route: 042
     Dates: start: 20120423, end: 20120427
  8. CISPLATIN [Suspect]
     Indication: HODGKIN^S DISEASE
     Dosage: 25 MG/M2, DAYS 1-4
     Dates: start: 20120423, end: 20120427
  9. ENTECAVIR [Concomitant]
     Dosage: 1 MG, QD
  10. PROPRANOLOL [Concomitant]
     Dosage: 20 MG, BID
  11. ALLOPURINOL [Concomitant]
     Dosage: 100 MG, QD
  12. LACTULOSE [Concomitant]
     Dosage: 30 ML, BID
  13. VANCOMYCIN [Concomitant]
     Dosage: 1 G, Q12H
     Route: 042
  14. PIPERACILLIN W/TAZOBACTAM [Concomitant]
     Dosage: 4.5 G, Q8H

REACTIONS (3)
  - Hypophosphataemia [Recovered/Resolved]
  - Leukopenia [Recovering/Resolving]
  - Neutropenia [Recovering/Resolving]
